FAERS Safety Report 6647346-4 (Version None)
Quarter: 2010Q1

REPORT INFORMATION
  Report Type: 
  Country: None (occurrence: None)
  Receive Date: 20100323
  Receipt Date: 20100311
  Transmission Date: 20100710
  Serious: Yes (Hospitalization)
  Sender: FDA-Public Use
  Company Number: B0641415A

PATIENT
  Sex: Female

DRUGS (5)
  1. TYVERB [Suspect]
     Indication: BREAST CANCER
     Dosage: 1250MG PER DAY
     Route: 065
     Dates: start: 20091014, end: 20091102
  2. XELODA [Concomitant]
  3. NIMESULIDUM [Concomitant]
  4. RAMIPRIL [Concomitant]
  5. ATEHEXAL [Concomitant]

REACTIONS (4)
  - ANKLE FRACTURE [None]
  - ASTHENIA [None]
  - DIARRHOEA [None]
  - FALL [None]
